FAERS Safety Report 7703565-7 (Version None)
Quarter: 2011Q3

REPORT INFORMATION
  Report Type: 
  Country: None (occurrence: None)
  Receive Date: 20110823
  Receipt Date: 20110811
  Transmission Date: 20111222
  Serious: Yes (Hospitalization, Other)
  Sender: FDA-Public Use
  Company Number: PHHY2011JP61710

PATIENT
  Age: 24 Year
  Sex: Male

DRUGS (3)
  1. MIZORIBINE [Concomitant]
     Indication: RENAL TRANSPLANT
     Dosage: UNK UKN, UNK
  2. METHYLPREDNISOLONE [Concomitant]
     Indication: RENAL TRANSPLANT
     Dosage: UNK UKN, UNK
  3. CYCLOSPORINE [Suspect]
     Indication: RENAL TRANSPLANT
     Dosage: UNK UKN, UNK

REACTIONS (4)
  - RENAL GRAFT LOSS [None]
  - DEVICE OCCLUSION [None]
  - PYELONEPHRITIS ACUTE [None]
  - URETERIC STENOSIS [None]
